FAERS Safety Report 4660205-1 (Version None)
Quarter: 2005Q2

REPORT INFORMATION
  Report Type: 
  Country: None (occurrence: None)
  Receive Date: 20050510
  Receipt Date: 20050502
  Transmission Date: 20051028
  Serious: Yes (Hospitalization)
  Sender: FDA-Public Use
  Company Number: 05P-163-0299006-00

PATIENT
  Age: 58 Year
  Sex: Female

DRUGS (3)
  1. HUMIRA [Suspect]
     Indication: RHEUMATOID ARTHRITIS
     Dosage: 40 MG, 1 IN 2 WK, SUBCUTANEOUS
     Route: 058
     Dates: start: 20050314, end: 20050416
  2. LEVOTHYROXINE SODIUM [Concomitant]
  3. LEXAPRO [Concomitant]

REACTIONS (10)
  - ANOREXIA [None]
  - DEHYDRATION [None]
  - DIARRHOEA [None]
  - DIARRHOEA HAEMORRHAGIC [None]
  - FATIGUE [None]
  - HAEMATURIA [None]
  - HEADACHE [None]
  - HYPONATRAEMIA [None]
  - PALPITATIONS [None]
  - URINARY TRACT INFECTION [None]
